FAERS Safety Report 10728154 (Version 2)
Quarter: 2015Q1

REPORT INFORMATION
  Report Type: Report from Study
  Country: CA (occurrence: CA)
  Receive Date: 20150121
  Receipt Date: 20150130
  Transmission Date: 20150721
  Serious: Yes (Hospitalization)
  Sender: FDA-Public Use
  Company Number: CA-ABBVIE-15P-028-1333113-00

PATIENT
  Sex: Male
  Weight: 70 kg

DRUGS (1)
  1. LUPRON DEPOT [Suspect]
     Active Substance: LEUPROLIDE ACETATE
     Indication: PROSTATE CANCER
     Route: 030
     Dates: start: 20120220

REACTIONS (2)
  - Bladder cancer [Recovered/Resolved]
  - Urinary cystectomy [Recovered/Resolved]

NARRATIVE: CASE EVENT DATE: 20140716
